FAERS Safety Report 4657392-8 (Version None)
Quarter: 2005Q2

REPORT INFORMATION
  Report Type: 
  Country: None (occurrence: None)
  Receive Date: 20050405
  Receipt Date: 20040830
  Transmission Date: 20051028
  Serious: Yes (Other)
  Sender: FDA-Public Use
  Company Number: 2004060848

PATIENT
  Age: 20 Year
  Sex: Male

DRUGS (2)
  1. GEODON [Suspect]
     Indication: ILL-DEFINED DISORDER
     Dosage: 40 MG (40 MG, 1 IN 1 D), ORAL
     Route: 048
     Dates: start: 20040101, end: 20040101
  2. OBETROL [Concomitant]

REACTIONS (4)
  - DYSPNOEA [None]
  - DYSTONIA [None]
  - MUSCLE CONTRACTIONS INVOLUNTARY [None]
  - SPEECH DISORDER [None]
